FAERS Safety Report 18790133 (Version 2)
Quarter: 2021Q1

REPORT INFORMATION
  Report Type: Spontaneous
  Country: IN (occurrence: IN)
  Receive Date: 20210126
  Receipt Date: 20210203
  Transmission Date: 20210419
  Serious: Yes (Death, Life-Threatening)
  Sender: FDA-Public Use
  Company Number: IN-GE HEALTHCARE LIFE SCIENCES-2021CSU000351

PATIENT

DRUGS (6)
  1. OMNIPAQUE [Suspect]
     Active Substance: IOHEXOL
     Indication: PRODUCT USED FOR UNKNOWN INDICATION
  2. AZTOR [AZITHROMYCIN] [Concomitant]
  3. TIGATEL [TELMISARTAN] [Concomitant]
  4. ASPIRIN. [Concomitant]
     Active Substance: ASPIRIN
  5. OMNIPAQUE [Suspect]
     Active Substance: IOHEXOL
     Indication: COMPUTERISED TOMOGRAM
     Dosage: 100 ML, SINGLE
     Route: 042
     Dates: start: 20210114, end: 20210114
  6. PROLOMET [Concomitant]

REACTIONS (2)
  - Cardio-respiratory arrest [Fatal]
  - Anaphylactic reaction [Fatal]

NARRATIVE: CASE EVENT DATE: 20210114
